FAERS Safety Report 14049741 (Version 1)
Quarter: 2017Q4

REPORT INFORMATION
  Report Type: Spontaneous
  Country: US (occurrence: US)
  Receive Date: 20171005
  Receipt Date: 20171005
  Transmission Date: 20180321
  Serious: Yes (Hospitalization, Other)
  Sender: FDA-Public Use
  Company Number: US-PFIZER INC-2017423441

PATIENT
  Sex: Female

DRUGS (23)
  1. FENTANYL. [Concomitant]
     Active Substance: FENTANYL
     Indication: CANCER PAIN
     Dosage: 12 UG, UNK [PLACE 1 PATCH (12 MCG TOTAL) ONTO THE SKIN EVERY (3) DAYS]
  2. ONDANSETRON [Concomitant]
     Active Substance: ONDANSETRON
     Indication: VOMITING
  3. SENNA [Concomitant]
     Active Substance: SENNA LEAF\SENNOSIDES\SENNOSIDES A AND B
     Indication: CONSTIPATION
     Dosage: 17.2 MG, 1X/DAY[TAKE 2 OF 8.6 MG TABLETS BY MOUTH AT BEDTIME AS NEEDED FOR CONSTIPATION]
     Route: 048
  4. SCOPOLAMINE [Concomitant]
     Active Substance: SCOPOLAMINE
     Dosage: 1.5 MG, UNK[PLACE 1 PATCH ONTO THE SKIN EVERY THREE (3) DAYS]
  5. TYLENOL EXTRA STRENGTH [Concomitant]
     Active Substance: ACETAMINOPHEN
     Dosage: 1000 MG, 3X/DAY
     Route: 048
  6. DENOSUMAB [Concomitant]
     Active Substance: DENOSUMAB
     Dosage: 120 MG, UNK
  7. DILAUDID [Concomitant]
     Active Substance: HYDROMORPHONE HYDROCHLORIDE
     Indication: CANCER PAIN
     Dosage: 4 MG, AS NEEDED [EVERY FOUR (4) HOURS AS NEEDED], MAX DAILY AMOUNT 24 MG
     Route: 048
  8. CHOLECALCIFEROL [Concomitant]
     Active Substance: CHOLECALCIFEROL
     Dosage: 400 IU, DAILY
     Route: 048
  9. ENOXAPARIN [Concomitant]
     Active Substance: ENOXAPARIN
     Dosage: 0.8 ML, 2X/DAY
     Route: 058
  10. FENTANYL. [Concomitant]
     Active Substance: FENTANYL
     Dosage: 12 UG, UNK [ADD TO 50 MCG PATCH TO EQUAL (62 MCG TD Q72H) MAX DAILY AMOUNT:12 MCG]
  11. ONDANSETRON [Concomitant]
     Active Substance: ONDANSETRON
     Indication: NAUSEA
     Dosage: 8 MG, AS NEEDED [TAKE 1 TABLET (8 MG TOTAL) BY MOUTH EVERY EIGHT (8) HOURS]
     Route: 048
  12. PROCHLORPERAZINE. [Concomitant]
     Active Substance: PROCHLORPERAZINE
     Indication: NAUSEA
     Dosage: 10 MG, AS NEEDED [TAKE 1 TABLET (10 MG TOTAL) BY MOUTH EVERY SIX (6) HOURS ]
     Route: 048
  13. FENTANYL. [Concomitant]
     Active Substance: FENTANYL
     Dosage: 50 UG, UNK,[PLACE 1 PATCH (50 MCG TOTAL) ONTO THE SKIN EVERY THREE (3) DAYS,MAX DAILY AMOUNT 50 MCG]
  14. METOCLOPRAMIDE. [Concomitant]
     Active Substance: METOCLOPRAMIDE
     Dosage: 5 MG, AS NEEDED [EVERY SIX (6) HOURS AS NEEDED]
     Route: 048
  15. MOVANTIK [Concomitant]
     Active Substance: NALOXEGOL OXALATE
     Dosage: 12.5 MG, DAILY [TAKE 1 TABLET (12.5 MG TOTAL) BY MOUTH DAILY
     Route: 048
  16. DEXAMETHASONE. [Concomitant]
     Active Substance: DEXAMETHASONE
     Dosage: 4 MG, DAILY [TAKE 2 TABLETS (4 MG TOTAL) BY MOUTH DAILY]
     Route: 048
  17. OLANZAPINE. [Concomitant]
     Active Substance: OLANZAPINE
     Dosage: 2.5 MG, 1X/DAY [TAKE 1 TABLET (2.5 MG TOTAL) BY MOUTH AT BEDTIME]
  18. LOVENOX [Concomitant]
     Active Substance: ENOXAPARIN SODIUM
     Dosage: UNK
  19. DICYCLOMINE [Concomitant]
     Active Substance: DICYCLOMINE HYDROCHLORIDE
     Indication: ABDOMINAL PAIN
     Dosage: 20 MG, AS NEEDED [TAKE 2 CAPSULES (20 MG TOTAL) BY MOUTH FOUR (4) TIMES DAILY AS NEEDED]
     Route: 048
  20. XALKORI [Suspect]
     Active Substance: CRIZOTINIB
     Indication: LUNG CANCER METASTATIC
     Dosage: 250 MG, 2X/DAY
     Route: 048
     Dates: start: 20170509
  21. DOCUSATE [Concomitant]
     Active Substance: DOCUSATE
     Indication: CONSTIPATION
     Dosage: 100 MG, AS NEEDED (TAKE 1 CAPSULE BY MOUTH TWICE DAILY AS NEEDED FOR CONSTIPATION)
     Route: 048
  22. OMEPRAZOLE. [Concomitant]
     Active Substance: OMEPRAZOLE
     Dosage: 40 MG, DAILY[TAKE 1 CAPSULE (40 MG TOTAL) BY MOUTH DAILY]
     Route: 048
  23. PROCHLORPERAZINE. [Concomitant]
     Active Substance: PROCHLORPERAZINE
     Indication: VOMITING

REACTIONS (11)
  - Pleural effusion [Recovering/Resolving]
  - Pain [Recovering/Resolving]
  - Vomiting [Recovered/Resolved]
  - Musculoskeletal pain [Unknown]
  - Back pain [Unknown]
  - Pulmonary embolism [Unknown]
  - Loss of personal independence in daily activities [Unknown]
  - Neoplasm progression [Unknown]
  - Deep vein thrombosis [Unknown]
  - Condition aggravated [Recovering/Resolving]
  - Pruritus [Unknown]

NARRATIVE: CASE EVENT DATE: 20170530
